FAERS Safety Report 6327184-2 (Version None)
Quarter: 2009Q3

REPORT INFORMATION
  Report Type: 
  Country: None (occurrence: None)
  Receive Date: 20090825
  Receipt Date: 20090817
  Transmission Date: 20100115
  Serious: Yes (Hospitalization)
  Sender: FDA-Public Use
  Company Number: FR-ASTRAZENECA-2009SE08527

PATIENT
  Age: 57 Year
  Sex: Female

DRUGS (12)
  1. INEXIUM [Suspect]
     Route: 048
  2. KARDEGIC [Suspect]
     Route: 048
  3. PLAVIX [Suspect]
     Route: 048
  4. TAHOR [Suspect]
     Indication: DYSLIPIDAEMIA
     Route: 048
  5. CARDENSIEL [Suspect]
     Route: 048
  6. LASIX [Suspect]
     Route: 048
  7. DAONIL [Suspect]
     Route: 048
  8. GLUCOPHAGE [Suspect]
     Route: 048
  9. DEROXAT [Suspect]
     Route: 048
  10. COVERSYL [Suspect]
     Route: 048
  11. LEXOMIL [Suspect]
     Route: 048
  12. NICOPATCH [Suspect]
     Route: 062

REACTIONS (1)
  - TOXIC SKIN ERUPTION [None]
